FAERS Safety Report 22116281 (Version 1)
Quarter: 2023Q1

REPORT INFORMATION
  Report Type: Spontaneous
  Country: RU (occurrence: None)
  Receive Date: 20230320
  Receipt Date: 20230320
  Transmission Date: 20230418
  Serious: Yes (Other)
  Sender: FDA-Public Use
  Company Number: 2023A065907

PATIENT
  Sex: Female

DRUGS (11)
  1. FULVESTRANT [Suspect]
     Active Substance: FULVESTRANT
     Dosage: 500 MG 1,15 DAYS,
     Route: 030
  2. ANASTROZOLE [Suspect]
     Active Substance: ANASTROZOLE
     Route: 048
  3. ZOLEDRONIC ACID [Concomitant]
     Active Substance: ZOLEDRONIC ACID
  4. DOCETAXEL [Concomitant]
     Active Substance: DOCETAXEL
  5. CAPECITABINE [Concomitant]
     Active Substance: CAPECITABINE
  6. GEMCITABINE [Concomitant]
     Active Substance: GEMCITABINE
  7. PALBOCICLIB [Concomitant]
     Active Substance: PALBOCICLIB
  8. ALPELISIB [Concomitant]
     Active Substance: ALPELISIB
     Dosage: 300 MG A DAY
  9. CETIRIZINE [Concomitant]
     Active Substance: CETIRIZINE HYDROCHLORIDE
     Dosage: 1 MG A DAY
  10. METFORMIN [Concomitant]
     Active Substance: METFORMIN HYDROCHLORIDE
     Dosage: 2000 MG A DAY
  11. LINAGLIPTIN [Concomitant]
     Active Substance: LINAGLIPTIN
     Dosage: 5 MG A DAY

REACTIONS (3)
  - Malignant neoplasm progression [Unknown]
  - Hyperglycaemia [Unknown]
  - Off label use [Unknown]
